FAERS Safety Report 12009387 (Version 1)
Quarter: 2016Q1

REPORT INFORMATION
  Report Type: Report from Study
  Country: US (occurrence: US)
  Receive Date: 20160205
  Receipt Date: 20160205
  Transmission Date: 20160526
  Serious: Yes (Other)
  Sender: FDA-Public Use
  Company Number: US-ACCORD-037568

PATIENT
  Age: 8 Year
  Sex: Male

DRUGS (8)
  1. ONDANSETRON [Concomitant]
     Active Substance: ONDANSETRON
  2. SULFAMETHOXAZOLE/TRIMETHOPRIM [Concomitant]
  3. MACROGOL [Concomitant]
     Active Substance: POLYETHYLENE GLYCOLS
  4. METHOTREXATE [Suspect]
     Active Substance: METHOTREXATE
     Indication: ACUTE LYMPHOCYTIC LEUKAEMIA
     Dosage: RECEIVED INTRATHECAL.?PHASE OF TREATMENT: INDUCTION (IND)
     Route: 037
  5. PARACETAMOL [Concomitant]
     Active Substance: ACETAMINOPHEN
  6. DAUNORUBICIN [Concomitant]
     Active Substance: DAUNORUBICIN
  7. FLUCONAZOLE. [Concomitant]
     Active Substance: FLUCONAZOLE
  8. METHYLPHENIDATE. [Concomitant]
     Active Substance: METHYLPHENIDATE

REACTIONS (5)
  - Abnormal behaviour [Unknown]
  - Neurotoxicity [Unknown]
  - Mental status changes [Unknown]
  - Fall [Unknown]
  - Anal incontinence [Unknown]
